FAERS Safety Report 5592390-1 (Version None)
Quarter: 2008Q1

REPORT INFORMATION
  Report Type: 
  Country: None (occurrence: None)
  Receive Date: 20080115
  Receipt Date: 20080104
  Transmission Date: 20080703
  Serious: Yes (Hospitalization)
  Sender: FDA-Public Use
  Company Number: SE-PFIZER INC-2007105196

PATIENT
  Sex: Female
  Weight: 90 kg

DRUGS (3)
  1. AROMASIN [Suspect]
     Indication: ENDOMETRIAL CANCER
     Route: 048
     Dates: start: 20050704, end: 20071213
  2. ATACAND [Concomitant]
  3. ACETAMINOPHEN [Concomitant]

REACTIONS (1)
  - DEEP VEIN THROMBOSIS [None]
